FAERS Safety Report 7503226-3 (Version None)
Quarter: 2011Q2

REPORT INFORMATION
  Report Type: 
  Country: None (occurrence: None)
  Receive Date: 20110525
  Receipt Date: 20110518
  Transmission Date: 20111010
  Serious: Yes (Other)
  Sender: FDA-Public Use
  Company Number: JP-JNJFOC-20110510092

PATIENT
  Age: 6 Decade
  Sex: Female

DRUGS (4)
  1. DOXIL [Suspect]
     Route: 042
     Dates: end: 20110401
  2. DOXIL [Suspect]
     Route: 042
  3. DOXIL [Suspect]
     Indication: OVARIAN CANCER
     Route: 042
  4. DOXIL [Suspect]
     Route: 042

REACTIONS (1)
  - DRUG ERUPTION [None]
